FAERS Safety Report 7794463-1 (Version None)
Quarter: 2011Q3

REPORT INFORMATION
  Report Type: 
  Country: None (occurrence: None)
  Receive Date: 20110930
  Receipt Date: 20110921
  Transmission Date: 20111222
  Serious: Yes (Other)
  Sender: FDA-Public Use
  Company Number: 2010SP058627

PATIENT
  Age: 75 Year
  Sex: Female

DRUGS (8)
  1. MIRTAZAPINE [Suspect]
     Indication: DEPRESSION
     Dosage: 7.5 MG;QD;PO ; 15 MG;QD;PO ; 22.5 MG;QD;PO ; 30 MG;QD;PO ; 15 MG;QD;PO ; 7.5 MG;QD;PO
     Route: 048
     Dates: start: 20100904, end: 20100910
  2. MIRTAZAPINE [Suspect]
     Indication: DEPRESSION
     Dosage: 7.5 MG;QD;PO ; 15 MG;QD;PO ; 22.5 MG;QD;PO ; 30 MG;QD;PO ; 15 MG;QD;PO ; 7.5 MG;QD;PO
     Route: 048
     Dates: start: 20100911, end: 20100917
  3. MIRTAZAPINE [Suspect]
     Indication: DEPRESSION
     Dosage: 7.5 MG;QD;PO ; 15 MG;QD;PO ; 22.5 MG;QD;PO ; 30 MG;QD;PO ; 15 MG;QD;PO ; 7.5 MG;QD;PO
     Route: 048
     Dates: start: 20100918, end: 20100924
  4. MIRTAZAPINE [Suspect]
     Indication: DEPRESSION
     Dosage: 7.5 MG;QD;PO ; 15 MG;QD;PO ; 22.5 MG;QD;PO ; 30 MG;QD;PO ; 15 MG;QD;PO ; 7.5 MG;QD;PO
     Route: 048
     Dates: start: 20101016, end: 20110722
  5. MIRTAZAPINE [Suspect]
     Indication: DEPRESSION
     Dosage: 7.5 MG;QD;PO ; 15 MG;QD;PO ; 22.5 MG;QD;PO ; 30 MG;QD;PO ; 15 MG;QD;PO ; 7.5 MG;QD;PO
     Route: 048
     Dates: start: 20110723
  6. MIRTAZAPINE [Suspect]
     Indication: DEPRESSION
     Dosage: 7.5 MG;QD;PO ; 15 MG;QD;PO ; 22.5 MG;QD;PO ; 30 MG;QD;PO ; 15 MG;QD;PO ; 7.5 MG;QD;PO
     Route: 048
     Dates: start: 20100925, end: 20101015
  7. OLMESARTAN MEDOXOMIL [Suspect]
     Indication: PRODUCT USED FOR UNKNOWN INDICATION
     Dosage: 20 MG;QD;PO
     Route: 048
  8. DONEPEZIL HYDROCHLORIDE [Concomitant]

REACTIONS (2)
  - BLOOD PRESSURE DECREASED [None]
  - LOSS OF CONSCIOUSNESS [None]
